FAERS Safety Report 8829238 (Version 1)
Quarter: 2012Q4

REPORT INFORMATION
  Report Type: 
  Country: FR (occurrence: FR)
  Receive Date: 20121008
  Receipt Date: 20121008
  Transmission Date: 20130627
  Serious: Yes (Hospitalization)
  Sender: FDA-Public Use
  Company Number: FR-BRISTOL-MYERS SQUIBB COMPANY-17009218

PATIENT
  Age: 81 Year
  Sex: Male

DRUGS (1)
  1. COUMADINE [Suspect]
     Dosage: inter:03Sep12
restr:04Sep12-4mg
dose reduced 7mg to 4 mg
     Route: 048

REACTIONS (3)
  - Haematoma [Recovering/Resolving]
  - Renal failure acute [Recovering/Resolving]
  - Oedema peripheral [Recovering/Resolving]
